FAERS Safety Report 10259894 (Version 1)
Quarter: 2014Q2

REPORT INFORMATION
  Report Type: Spontaneous
  Country: GB (occurrence: GB)
  Receive Date: 20140625
  Receipt Date: 20140625
  Transmission Date: 20141212
  Serious: Yes (Other)
  Sender: FDA-Public Use
  Company Number: GB-GLAXOSMITHKLINE-B1006019A

PATIENT
  Sex: Male

DRUGS (1)
  1. ROPINIROLE [Suspect]
     Indication: PRODUCT USED FOR UNKNOWN INDICATION

REACTIONS (8)
  - Hemiparesis [Unknown]
  - Medication residue present [Unknown]
  - Tremor [Unknown]
  - Muscle rigidity [Unknown]
  - Muscle twitching [Unknown]
  - Hypokinesia [Unknown]
  - Hypoaesthesia [Unknown]
  - Asthenia [Unknown]
